FAERS Safety Report 9423719 (Version 1)
Quarter: 2013Q3

REPORT INFORMATION
  Report Type: Spontaneous
  Country: US (occurrence: US)
  Receive Date: 20130728
  Receipt Date: 20130728
  Transmission Date: 20140515
  Serious: No
  Sender: FDA-Public Use
  Company Number: US-009507513-1307USA013038

PATIENT
  Age: 63 Year
  Sex: Female

DRUGS (2)
  1. AZASITE [Suspect]
     Indication: BLEPHARITIS
     Dosage: UNK
     Route: 047
     Dates: start: 20130713
  2. SYNTHROID [Concomitant]

REACTIONS (5)
  - Excessive eye blinking [Not Recovered/Not Resolved]
  - Intraocular pressure increased [Not Recovered/Not Resolved]
  - Accidental exposure to product [Unknown]
  - Drug dose omission [Unknown]
  - Product quality issue [Unknown]
